FAERS Safety Report 21018964 (Version 1)
Quarter: 2022Q2

REPORT INFORMATION
  Report Type: Report from Study
  Country: SG (occurrence: SG)
  Receive Date: 20220628
  Receipt Date: 20220628
  Transmission Date: 20220721
  Serious: Yes (Hospitalization, Other)
  Sender: FDA-Public Use
  Company Number: SG-BRISTOL-MYERS SQUIBB COMPANY-2022-061102

PATIENT
  Age: 52 Year
  Sex: Male
  Weight: 44.2 kg

DRUGS (6)
  1. NIVOLUMAB [Suspect]
     Active Substance: NIVOLUMAB
     Indication: Non-small cell lung cancer
     Route: 042
     Dates: start: 20220524, end: 20220614
  2. ADG-106 [Suspect]
     Active Substance: ADG-106
     Indication: Non-small cell lung cancer
     Route: 042
     Dates: start: 20220524, end: 20220614
  3. MORPHINE SULFATE [Concomitant]
     Active Substance: MORPHINE SULFATE
     Indication: Product used for unknown indication
     Route: 048
     Dates: start: 20220602
  4. GABAPENTIN [Concomitant]
     Active Substance: GABAPENTIN
     Indication: Product used for unknown indication
     Dosage: FREQUENCY: EVERY NIGHT
     Route: 048
     Dates: start: 20220602, end: 20220613
  5. AMOXICILLIN\CLAVULANATE POTASSIUM [Concomitant]
     Active Substance: AMOXICILLIN\CLAVULANATE POTASSIUM
     Indication: Adverse event
     Route: 048
     Dates: start: 20220613
  6. CIPROFLOXACIN [Concomitant]
     Active Substance: CIPROFLOXACIN
     Indication: Adverse event
     Route: 048
     Dates: start: 20220613

REACTIONS (2)
  - Febrile neutropenia [Not Recovered/Not Resolved]
  - Escherichia bacteraemia [Not Recovered/Not Resolved]

NARRATIVE: CASE EVENT DATE: 20220613
